FAERS Safety Report 17488317 (Version 4)
Quarter: 2020Q2

REPORT INFORMATION
  Report Type: Report from Study
  Country: CR (occurrence: CR)
  Receive Date: 20200303
  Receipt Date: 20200529
  Transmission Date: 20200713
  Serious: Yes (Life-Threatening, Other)
  Sender: FDA-Public Use
  Company Number: NVSC2020CR059107

PATIENT
  Age: 39 Year
  Sex: Female

DRUGS (1)
  1. GILENYA [Suspect]
     Active Substance: FINGOLIMOD HYDROCHLORIDE
     Indication: RELAPSING-REMITTING MULTIPLE SCLEROSIS
     Dosage: 0.5 MG, QD
     Route: 048
     Dates: start: 20200225

REACTIONS (16)
  - Menorrhagia [Unknown]
  - Feeling abnormal [Unknown]
  - Suicidal ideation [Unknown]
  - Mouth cyst [Unknown]
  - Gait disturbance [Unknown]
  - Bradykinesia [Unknown]
  - Ovarian cyst [Unknown]
  - Dizziness [Unknown]
  - Stress [Unknown]
  - Fatigue [Unknown]
  - Pain [Unknown]
  - Polycystic ovaries [Unknown]
  - Memory impairment [Unknown]
  - Malaise [Unknown]
  - Hypoaesthesia [Unknown]
  - Drug ineffective [Unknown]

NARRATIVE: CASE EVENT DATE: 20200522
